FAERS Safety Report 4778552-1 (Version None)
Quarter: 2005Q3

REPORT INFORMATION
  Report Type: 
  Country: None (occurrence: None)
  Receive Date: 20050926
  Receipt Date: 20050610
  Transmission Date: 20060218
  Serious: Yes (Hospitalization)
  Sender: FDA-Public Use
  Company Number: US-MERCK-0506USA01853

PATIENT
  Age: 68 Year
  Sex: Male
  Weight: 75 kg

DRUGS (23)
  1. VIOXX [Suspect]
     Indication: SPONDYLITIS
     Route: 048
     Dates: start: 19990101, end: 20040901
  2. VIOXX [Suspect]
     Route: 048
     Dates: start: 19990101, end: 20040901
  3. VIOXX [Suspect]
     Indication: BACK PAIN
     Route: 048
     Dates: start: 19990101, end: 20040901
  4. VIOXX [Suspect]
     Route: 048
     Dates: start: 19990101, end: 20040901
  5. ASPIRIN [Concomitant]
     Route: 065
     Dates: start: 19820101
  6. MONOPRIL [Concomitant]
     Indication: HYPERTENSION
     Route: 065
     Dates: start: 19860101
  7. PRINIVIL [Concomitant]
     Indication: HYPERTENSION
     Route: 048
     Dates: start: 19860101
  8. ZESTRIL [Concomitant]
     Indication: HYPERTENSION
     Route: 065
     Dates: start: 19860101
  9. TOPROL-XL [Concomitant]
     Indication: HYPERTENSION
     Route: 065
     Dates: start: 19950101
  10. LIPITOR [Concomitant]
     Indication: CORONARY ARTERY DISEASE
     Route: 065
     Dates: start: 19960101
  11. LIPITOR [Concomitant]
     Indication: BLOOD CHOLESTEROL INCREASED
     Route: 065
     Dates: start: 19960101
  12. ZOCOR [Concomitant]
     Indication: BLOOD CHOLESTEROL INCREASED
     Route: 048
     Dates: start: 19960101
  13. VIAGRA [Concomitant]
     Indication: ERECTILE DYSFUNCTION
     Route: 065
  14. CEFTIN [Concomitant]
     Route: 065
  15. GENTAMICIN [Concomitant]
     Route: 065
  16. PROTONIX [Concomitant]
     Indication: GASTROOESOPHAGEAL REFLUX DISEASE
     Route: 065
  17. CIALIS [Concomitant]
     Indication: ERECTILE DYSFUNCTION
     Route: 065
  18. CLARINEX [Concomitant]
     Indication: SEASONAL ALLERGY
     Route: 065
  19. ZYLOPRIM [Concomitant]
     Indication: GOUT
     Route: 065
  20. CARDURA [Concomitant]
     Indication: HYPERTENSION
     Route: 065
     Dates: start: 19970101
  21. CARDURA [Concomitant]
     Indication: BENIGN PROSTATIC HYPERPLASIA
     Route: 065
     Dates: start: 19970101
  22. WELLBUTRIN [Concomitant]
     Indication: NECK PAIN
     Route: 065
     Dates: start: 20030226, end: 20030501
  23. WELLBUTRIN [Concomitant]
     Indication: BACK PAIN
     Route: 065
     Dates: start: 20030226, end: 20030501

REACTIONS (56)
  - ALANINE AMINOTRANSFERASE INCREASED [None]
  - AORTIC VALVE INCOMPETENCE [None]
  - ARTERIAL DISORDER [None]
  - ARTHROPOD BITE [None]
  - ASPARTATE AMINOTRANSFERASE INCREASED [None]
  - ASTHENIA [None]
  - BALANCE DISORDER [None]
  - BLOOD ALKALINE PHOSPHATASE INCREASED [None]
  - BLOOD AMYLASE INCREASED [None]
  - BLOOD GLUCOSE INCREASED [None]
  - BLOOD UREA INCREASED [None]
  - BRAIN STEM INFARCTION [None]
  - BRAIN STEM ISCHAEMIA [None]
  - CALCINOSIS [None]
  - CALCULUS PROSTATIC [None]
  - CARDIAC VALVE DISEASE [None]
  - CEREBRAL ATROPHY [None]
  - CEREBROVASCULAR ACCIDENT [None]
  - CHILLS [None]
  - CHRONIC FATIGUE SYNDROME [None]
  - CORONARY ARTERY SURGERY [None]
  - DEHYDRATION [None]
  - DEPRESSION [None]
  - DILATATION ATRIAL [None]
  - DRUG HYPERSENSITIVITY [None]
  - DYSURIA [None]
  - EJECTION FRACTION DECREASED [None]
  - FATIGUE [None]
  - GAIT DISTURBANCE [None]
  - GASTROOESOPHAGEAL REFLUX DISEASE [None]
  - HEPATOSPLENOMEGALY [None]
  - HYPERCHOLESTEROLAEMIA [None]
  - HYPERTENSION [None]
  - HYPONATRAEMIA [None]
  - LABYRINTHITIS [None]
  - LIPASE INCREASED [None]
  - LIVER FUNCTION TEST ABNORMAL [None]
  - MITRAL VALVE INCOMPETENCE [None]
  - MYALGIA [None]
  - MYOCARDIAL INFARCTION [None]
  - NAUSEA [None]
  - NEUTROPHILIA [None]
  - NYSTAGMUS [None]
  - PANCREATITIS [None]
  - POSTURE ABNORMAL [None]
  - PROTEINURIA [None]
  - PULMONARY VALVE INCOMPETENCE [None]
  - PYREXIA [None]
  - RASH MACULO-PAPULAR [None]
  - SHIFT TO THE LEFT [None]
  - SINUSITIS [None]
  - TRICUSPID VALVE INCOMPETENCE [None]
  - VENTRICULAR HYPERTROPHY [None]
  - VENTRICULAR HYPOKINESIA [None]
  - VOMITING [None]
  - WEIGHT DECREASED [None]
